FAERS Safety Report 7548962-8 (Version None)
Quarter: 2011Q2

REPORT INFORMATION
  Report Type: 
  Country: None (occurrence: None)
  Receive Date: 20110608
  Receipt Date: 20110531
  Transmission Date: 20111010
  Serious: Yes (Hospitalization)
  Sender: FDA-Public Use
  Company Number: 2011SP017094

PATIENT
  Age: 68 Year
  Sex: Male
  Weight: 42.2 kg

DRUGS (7)
  1. PEG-INTRON [Suspect]
     Indication: HEPATITIS C
     Dosage: 60 MCG, QW, SC
     Route: 058
     Dates: start: 20100217, end: 20110323
  2. LENDORMIN [Concomitant]
  3. OLOPATADINE HCL [Concomitant]
  4. LASIX [Concomitant]
  5. REBETOL [Suspect]
     Indication: HEPATITIS C
     Dosage: 200 MG, BID, PO
     Route: 048
     Dates: start: 20100217, end: 20110323
  6. ALDACTONE [Concomitant]
  7. INTERFERON BETA NOS [Suspect]
     Indication: HEPATITIS C
     Dosage: IV
     Route: 042

REACTIONS (4)
  - SUBDURAL HAEMATOMA [None]
  - FALL [None]
  - MALAISE [None]
  - DIZZINESS [None]
